FAERS Safety Report 14062727 (Version 2)
Quarter: 2017Q4

REPORT INFORMATION
  Report Type: Other
  Country: FR (occurrence: FR)
  Receive Date: 20171009
  Receipt Date: 20171114
  Transmission Date: 20180321
  Serious: Yes (Hospitalization)
  Sender: FDA-Public Use
  Company Number: FR-ASTELLAS-2017US039716

PATIENT
  Age: 23 Year
  Sex: Female

DRUGS (21)
  1. DEPO-MEDROL [Suspect]
     Active Substance: METHYLPREDNISOLONE ACETATE
     Indication: ACUTE LEUKAEMIA
     Route: 037
     Dates: start: 20170810, end: 20170810
  2. ACICLOVIR MYLAN                    /00587301/ [Suspect]
     Active Substance: ACYCLOVIR
     Indication: HERPES VIRUS INFECTION
     Route: 042
     Dates: start: 20170824
  3. AMBISOME [Suspect]
     Active Substance: AMPHOTERICIN B
     Indication: FUNGAL INFECTION
     Route: 042
     Dates: start: 20170828, end: 20170830
  4. METHOTREXATE MYLAN [Suspect]
     Active Substance: METHOTREXATE SODIUM
     Route: 037
     Dates: start: 20170814, end: 20170814
  5. TIENAM [Suspect]
     Active Substance: CILASTATIN SODIUM\IMIPENEM
     Route: 042
     Dates: start: 20170825
  6. AMIKLIN                            /00391001/ [Concomitant]
     Active Substance: AMIKACIN SULFATE
     Indication: PRODUCT USED FOR UNKNOWN INDICATION
     Dosage: UNK UNK, UNKNOWN FREQ.
     Route: 065
     Dates: start: 201708
  7. TRIFLUCAN [Suspect]
     Active Substance: FLUCONAZOLE
     Indication: FUNGAL INFECTION
     Route: 042
     Dates: start: 20170825, end: 20170826
  8. TRIFLUCAN [Suspect]
     Active Substance: FLUCONAZOLE
     Route: 042
     Dates: start: 20170828
  9. TIENAM [Suspect]
     Active Substance: CILASTATIN SODIUM\IMIPENEM
     Indication: SEPTIC SHOCK
     Route: 042
     Dates: start: 20170823, end: 201708
  10. VANCOMYCINE SANDOZ [Suspect]
     Active Substance: VANCOMYCIN
     Indication: SEPTIC SHOCK
     Route: 042
     Dates: start: 20170825
  11. ORACILLINE                         /00001801/ [Concomitant]
     Active Substance: PENICILLIN V
     Indication: PRODUCT USED FOR UNKNOWN INDICATION
     Dosage: UNK UNK, UNKNOWN FREQ.
     Route: 065
  12. CYTARABINE. [Suspect]
     Active Substance: CYTARABINE
     Indication: ACUTE LEUKAEMIA
     Route: 037
     Dates: start: 20170810, end: 20170810
  13. DEPO-MEDROL [Suspect]
     Active Substance: METHYLPREDNISOLONE ACETATE
     Route: 037
     Dates: start: 20170817, end: 20170817
  14. METRONIDAZOLE B BRAUN [Suspect]
     Active Substance: METRONIDAZOLE
     Indication: COLITIS
     Route: 042
     Dates: start: 20170829, end: 20170830
  15. METHOTREXATE MYLAN [Suspect]
     Active Substance: METHOTREXATE SODIUM
     Indication: ACUTE LEUKAEMIA
     Route: 037
     Dates: start: 20170810, end: 20170810
  16. TAZOCILLINE [Concomitant]
     Active Substance: PIPERACILLIN SODIUM\TAZOBACTAM SODIUM
     Indication: PRODUCT USED FOR UNKNOWN INDICATION
     Dosage: UNK UNK, UNKNOWN FREQ.
     Route: 065
     Dates: start: 20170823, end: 20170825
  17. CYTARABINE. [Suspect]
     Active Substance: CYTARABINE
     Route: 037
     Dates: start: 20170814, end: 20170814
  18. CYTARABINE. [Suspect]
     Active Substance: CYTARABINE
     Route: 037
     Dates: start: 20170817, end: 20170817
  19. METHOTREXATE MYLAN [Suspect]
     Active Substance: METHOTREXATE SODIUM
     Route: 037
     Dates: start: 20170817, end: 20170817
  20. DEPO-MEDROL [Suspect]
     Active Substance: METHYLPREDNISOLONE ACETATE
     Route: 037
     Dates: start: 20170814, end: 20170814
  21. METRONIDAZOLE B BRAUN [Suspect]
     Active Substance: METRONIDAZOLE
     Dosage: UNK, UNKNOWN FREQ.
     Route: 042
     Dates: start: 20170831, end: 20170902

REACTIONS (1)
  - Hand-foot-and-mouth disease [Recovering/Resolving]

NARRATIVE: CASE EVENT DATE: 20170830
